FAERS Safety Report 7937781-6 (Version None)
Quarter: 2011Q4

REPORT INFORMATION
  Report Type: 
  Country: None (occurrence: None)
  Receive Date: 20111123
  Receipt Date: 20111115
  Transmission Date: 20120403
  Serious: Yes (Life-Threatening, Hospitalization, Other)
  Sender: FDA-Public Use
  Company Number: CA-ASTRAZENECA-2011SE70332

PATIENT
  Age: 25 Year
  Sex: Female

DRUGS (3)
  1. CITALOPRAM HYDROBROMIDE [Concomitant]
     Route: 048
  2. SEROQUEL XR [Suspect]
     Indication: DEPRESSION
     Dosage: TWO SEROQUEL XR 50 MG TABLETS AT BEDTIME
     Route: 048
     Dates: end: 20110901
  3. SEROQUEL XR [Suspect]
     Indication: ANXIETY
     Dosage: TWO SEROQUEL XR 50 MG TABLETS AT BEDTIME
     Route: 048
     Dates: end: 20110901

REACTIONS (6)
  - RESPIRATORY ARREST [None]
  - DRUG HYPERSENSITIVITY [None]
  - CONVULSION [None]
  - LOSS OF CONSCIOUSNESS [None]
  - INSOMNIA [None]
  - AMNESIA [None]
